FAERS Safety Report 8786896 (Version 2)
Quarter: 2015Q2

REPORT INFORMATION
  Report Type: Report from Study
  Country: US (occurrence: US)
  Receive Date: 20120914
  Receipt Date: 20150407
  Transmission Date: 20150821
  Serious: Yes (Death, Other)
  Sender: FDA-Public Use
  Company Number: US-ROCHE-1127115

PATIENT
  Age: 62 Year
  Sex: Male

DRUGS (41)
  1. AVASTIN [Suspect]
     Active Substance: BEVACIZUMAB
     Route: 042
     Dates: start: 20080616
  2. DECADRON [Suspect]
     Active Substance: DEXAMETHASONE
     Route: 065
  3. POTASSIUM CHLORIDE. [Concomitant]
     Active Substance: POTASSIUM CHLORIDE
     Route: 065
  4. POTASSIUM CHLORIDE. [Concomitant]
     Active Substance: POTASSIUM CHLORIDE
     Route: 065
  5. NORVASC [Concomitant]
     Active Substance: AMLODIPINE BESYLATE
     Route: 048
  6. ATENOLOL. [Concomitant]
     Active Substance: ATENOLOL
     Indication: HYPERTENSION
     Route: 065
  7. PAXIL (UNITED STATES) [Concomitant]
     Route: 048
  8. DEXAMETHASONE. [Concomitant]
     Active Substance: DEXAMETHASONE
     Route: 048
  9. AVASTIN [Suspect]
     Active Substance: BEVACIZUMAB
     Route: 042
     Dates: start: 20080429
  10. AVASTIN [Suspect]
     Active Substance: BEVACIZUMAB
     Route: 042
     Dates: start: 20090415
  11. CIPRO [Concomitant]
     Active Substance: CIPROFLOXACIN HYDROCHLORIDE
     Route: 065
  12. TARCEVA [Suspect]
     Active Substance: ERLOTINIB HYDROCHLORIDE
     Route: 048
  13. SIROLIMUS. [Suspect]
     Active Substance: SIROLIMUS
     Route: 048
  14. GLIPIZIDE ER [Concomitant]
     Active Substance: GLIPIZIDE
     Route: 048
  15. PEPCID [Concomitant]
     Active Substance: FAMOTIDINE
     Route: 048
  16. LANTUS [Concomitant]
     Active Substance: INSULIN GLARGINE
     Route: 048
  17. RAPAMYCIN [Concomitant]
     Active Substance: SIROLIMUS
  18. PACKED RED BLOOD CELLS [Concomitant]
     Active Substance: HUMAN RED BLOOD CELL
     Dosage: 3 UNITS
     Route: 065
  19. GLIPIZIDE ER [Concomitant]
     Active Substance: GLIPIZIDE
     Route: 048
  20. LOVENOX [Concomitant]
     Active Substance: ENOXAPARIN SODIUM
     Route: 058
  21. NITROSTAT [Concomitant]
     Active Substance: NITROGLYCERIN
     Route: 065
  22. METAMUCIL [Concomitant]
     Active Substance: PLANTAGO SEED
     Route: 065
  23. COLACE [Concomitant]
     Active Substance: DOCUSATE SODIUM
     Route: 048
  24. AVASTIN [Suspect]
     Active Substance: BEVACIZUMAB
     Indication: BRAIN NEOPLASM MALIGNANT
     Route: 042
     Dates: start: 20080415
  25. CLEOCIN T GEL [Concomitant]
     Indication: RASH
  26. CLEOCIN T GEL [Concomitant]
     Indication: RASH
  27. AVASTIN [Suspect]
     Active Substance: BEVACIZUMAB
     Route: 042
     Dates: start: 20080603
  28. TARCEVA [Suspect]
     Active Substance: ERLOTINIB HYDROCHLORIDE
     Indication: PRODUCT USED FOR UNKNOWN INDICATION
     Route: 048
  29. ATIVAN [Concomitant]
     Active Substance: LORAZEPAM
  30. FLUCONAZOLE. [Concomitant]
     Active Substance: FLUCONAZOLE
  31. BENICAR [Concomitant]
     Active Substance: OLMESARTAN MEDOXOMIL
     Route: 048
  32. PAROXETINE [Concomitant]
     Active Substance: PAROXETINE\PAROXETINE HYDROCHLORIDE
     Route: 065
  33. NEUPOGEN [Concomitant]
     Active Substance: FILGRASTIM
     Route: 065
  34. PEPCID [Concomitant]
     Active Substance: FAMOTIDINE
     Route: 048
  35. AVASTIN [Suspect]
     Active Substance: BEVACIZUMAB
     Route: 042
     Dates: start: 20080520
  36. SIROLIMUS. [Suspect]
     Active Substance: SIROLIMUS
     Indication: PRODUCT USED FOR UNKNOWN INDICATION
     Route: 048
  37. DECADRON [Suspect]
     Active Substance: DEXAMETHASONE
     Indication: PRODUCT USED FOR UNKNOWN INDICATION
     Route: 065
  38. ETOPOSIDE. [Suspect]
     Active Substance: ETOPOSIDE
     Indication: PRODUCT USED FOR UNKNOWN INDICATION
     Route: 065
  39. METFORMIN HYDROCHLORIDE. [Concomitant]
     Active Substance: METFORMIN HYDROCHLORIDE
     Route: 048
  40. LIPITOR [Concomitant]
     Active Substance: ATORVASTATIN CALCIUM
     Route: 048
  41. HUMALOG [Concomitant]
     Active Substance: INSULIN LISPRO
     Route: 065

REACTIONS (36)
  - Death [Fatal]
  - Thrombocytopenia [Unknown]
  - Dermatitis [Unknown]
  - Fatigue [Recovered/Resolved]
  - Cushingoid [Unknown]
  - Malaise [Unknown]
  - Bedridden [Unknown]
  - Diarrhoea [Unknown]
  - Oesophageal discomfort [Unknown]
  - Off label use [Unknown]
  - Hypoaesthesia [Unknown]
  - Dysstasia [Unknown]
  - Pain [Unknown]
  - Rash [Unknown]
  - Nocturia [Unknown]
  - Oral candidiasis [Recovered/Resolved]
  - Oedema peripheral [Unknown]
  - Tenderness [Unknown]
  - Alopecia [Unknown]
  - Faecal incontinence [Unknown]
  - Muscle atrophy [Unknown]
  - Haemorrhoids [Unknown]
  - Rash maculo-papular [Unknown]
  - Asthenia [Unknown]
  - Dysphonia [Unknown]
  - Hypersomnia [Unknown]
  - Ecchymosis [Unknown]
  - Oedema [Unknown]
  - Slow speech [Unknown]
  - Abdominal discomfort [Unknown]
  - Hypotension [Unknown]
  - Pancytopenia [Unknown]
  - Amnesia [Unknown]
  - Haematotoxicity [Unknown]
  - Hypertension [Unknown]
  - Drug ineffective [Unknown]

NARRATIVE: CASE EVENT DATE: 20080429
